FAERS Safety Report 7796511-1 (Version None)
Quarter: 2011Q4

REPORT INFORMATION
  Report Type: 
  Country: None (occurrence: None)
  Receive Date: 20111005
  Receipt Date: 20110929
  Transmission Date: 20120403
  Serious: No
  Sender: FDA-Public Use
  Company Number: US-PFIZER INC-2011144625

PATIENT
  Sex: Female
  Weight: 83.4 kg

DRUGS (12)
  1. GENOTROPIN [Suspect]
     Indication: GROWTH HORMONE DEFICIENCY
     Dosage: 0.4 MG, 1X/DAY
     Route: 058
     Dates: start: 20110603
  2. GENOTROPIN [Suspect]
     Dosage: 0.6 MG, 1X/DAY
     Dates: start: 20110901
  3. THYROID TAB [Concomitant]
     Indication: HYPOTHYROIDISM
     Dosage: 60 MG, 1X/DAY
  4. ALBUTEROL [Concomitant]
     Indication: ASTHMA
     Dosage: UNK, AS NEEDED
  5. DRISDOL [Concomitant]
     Indication: VITAMIN D DEFICIENCY
     Dosage: 50000 IU, 2X/WEEK
  6. DIOVAN HCT [Concomitant]
     Indication: HYPERTENSION
     Dosage: 80/12.5MG,DAILY
  7. PREMARIN [Concomitant]
     Indication: HYSTERECTOMY
     Dosage: 0.625 MG, UNK
  8. VALSARTAN [Concomitant]
     Indication: HYPERTENSION
     Dosage: UNK
  9. ADVAIR DISKUS 100/50 [Concomitant]
     Indication: ASTHMA
     Dosage: UNK
  10. ESTRADIOL [Concomitant]
     Indication: HORMONE THERAPY
     Dosage: UNK
     Route: 061
  11. TESTOSTERONE [Concomitant]
     Indication: HORMONE THERAPY
     Dosage: UNK
  12. ALLEGRA [Concomitant]
     Indication: HYPERSENSITIVITY
     Dosage: UNK

REACTIONS (4)
  - JOINT STIFFNESS [None]
  - HYPERSOMNIA [None]
  - OEDEMA PERIPHERAL [None]
  - ARTHRALGIA [None]
